FAERS Safety Report 4651706-0 (Version None)
Quarter: 2005Q2

REPORT INFORMATION
  Report Type: 
  Country: None (occurrence: None)
  Receive Date: 20050404
  Receipt Date: 20041124
  Transmission Date: 20051028
  Serious: No
  Sender: FDA-Public Use
  Company Number: USA041184762

PATIENT
  Sex: Male

DRUGS (6)
  1. CYMBALTA [Suspect]
     Dosage: 60 MG
  2. DIOVAN [Concomitant]
  3. PREVACID [Concomitant]
  4. AMBIEN [Concomitant]
  5. TRENTAL [Concomitant]
  6. GLYBURIDE [Concomitant]

REACTIONS (1)
  - ORTHOSTATIC HYPOTENSION [None]
